FAERS Safety Report 15138301 (Version 1)
Quarter: 2018Q3

REPORT INFORMATION
  Report Type: Spontaneous
  Country: US (occurrence: US)
  Receive Date: 20180713
  Receipt Date: 20180713
  Transmission Date: 20181010
  Serious: Yes (Hospitalization, Other)
  Sender: FDA-Public Use
  Company Number: US-AUROBINDO-AUR-APL-2018-034089

PATIENT
  Age: 71 Year
  Sex: Male
  Weight: 90.7 kg

DRUGS (4)
  1. LIDOCAINE. [Interacting]
     Active Substance: LIDOCAINE
     Dosage: 90 MILLIGRAMBOLUS, (1 MG/KG) ROUGHLY 30 MINUTESUNK
  2. LIDOCAINE. [Suspect]
     Active Substance: LIDOCAINE
     Indication: VENTRICULAR TACHYCARDIA
     Dosage: 4 MILLIGRAM, EVERY MINUTE (CONTINUOUS INFUSION)
     Route: 065
  3. MEXILETINE [Interacting]
     Active Substance: MEXILETINE
     Indication: VENTRICULAR TACHYCARDIA
     Dosage: 150 MILLIGRAM, EVERY 8 HOURS (SINGLE AFTERNOON DOSE)
     Route: 065
  4. LIDOCAINE. [Interacting]
     Active Substance: LIDOCAINE
     Dosage: 2 MILLIGRAM EVERY MINUTE (CONTINUOUS INFUSION)
     Route: 065

REACTIONS (7)
  - Toxicity to various agents [Unknown]
  - Drug level increased [Unknown]
  - Delirium [Recovering/Resolving]
  - Drug interaction [Unknown]
  - Neurotoxicity [Unknown]
  - Incorrect drug administration duration [Unknown]
  - Amnesia [Unknown]
